FAERS Safety Report 4605929-7 (Version None)
Quarter: 2005Q2

REPORT INFORMATION
  Report Type: 
  Country: None (occurrence: None)
  Receive Date: 20050303
  Receipt Date: 20041123
  Transmission Date: 20051028
  Serious: No
  Sender: FDA-Public Use
  Company Number: 200421061BWH

PATIENT
  Age: 31 Year
  Sex: Male

DRUGS (3)
  1. LEVITRA [Suspect]
     Indication: ERECTILE DYSFUNCTION
     Dosage: 5 MG, QD, ORAL
     Route: 048
     Dates: start: 20040901
  2. LEVITRA [Suspect]
     Indication: PREMATURE EJACULATION
     Dosage: 5 MG, QD, ORAL
     Route: 048
     Dates: start: 20040901
  3. ZOLOFT [Concomitant]

REACTIONS (4)
  - ERECTION INCREASED [None]
  - PENILE PAIN [None]
  - SOFT TISSUE INJURY [None]
  - URINARY TRACT INFECTION [None]
